FAERS Safety Report 10899602 (Version 2)
Quarter: 2015Q1

REPORT INFORMATION
  Report Type: Spontaneous
  Country: US (occurrence: US)
  Receive Date: 20150309
  Receipt Date: 20150316
  Transmission Date: 20150721
  Serious: No
  Sender: FDA-Public Use
  Company Number: US-009507513-1503USA004122

PATIENT
  Age: 52 Year
  Sex: Female

DRUGS (1)
  1. GRASTEK [Suspect]
     Active Substance: PHLEUM PRATENSE POLLEN
     Indication: RHINITIS ALLERGIC
     Dosage: STRENGTH: 2800 BAU
     Route: 048
     Dates: start: 20150209, end: 20150223

REACTIONS (3)
  - Throat irritation [Recovering/Resolving]
  - Oral pruritus [Recovering/Resolving]
  - Throat tightness [Recovering/Resolving]

NARRATIVE: CASE EVENT DATE: 20150209
